FAERS Safety Report 16569046 (Version 2)
Quarter: 2019Q3

REPORT INFORMATION
  Report Type: Spontaneous
  Country: FR (occurrence: FR)
  Receive Date: 20190713
  Receipt Date: 20190713
  Transmission Date: 20191004
  Serious: Yes (Other)
  Sender: FDA-Public Use
  Company Number: PHHY2019FR162319

PATIENT
  Age: 41 Year
  Sex: Male

DRUGS (2)
  1. CIPROFLOXACINE [Suspect]
     Active Substance: CIPROFLOXACIN
     Indication: PROSTATITIS ESCHERICHIA COLI
     Dosage: 1000 MG, QD
     Route: 048
     Dates: start: 20181129, end: 20181201
  2. OFLOXACIN. [Suspect]
     Active Substance: OFLOXACIN
     Indication: PROSTATITIS ESCHERICHIA COLI
     Dosage: 400 MG, QD
     Route: 048
     Dates: start: 20181201, end: 20181218

REACTIONS (1)
  - Pudendal canal syndrome [Recovering/Resolving]

NARRATIVE: CASE EVENT DATE: 201812
